FAERS Safety Report 4575748-9 (Version None)
Quarter: 2005Q1

REPORT INFORMATION
  Report Type: 
  Country: None (occurrence: None)
  Receive Date: 20050209
  Receipt Date: 20050131
  Transmission Date: 20050727
  Serious: Yes (Hospitalization)
  Sender: FDA-Public Use
  Company Number: US-GLAXOSMITHKLINE-A0542974A

PATIENT
  Sex: Female

DRUGS (1)
  1. TUMS [Suspect]
     Indication: DYSPEPSIA
     Route: 048

REACTIONS (5)
  - CARDIAC FAILURE [None]
  - GASTRIC DISORDER [None]
  - HIATUS HERNIA [None]
  - PNEUMONIA [None]
  - VENTRICULAR DYSFUNCTION [None]
